FAERS Safety Report 23581111 (Version 1)
Quarter: 2024Q1

REPORT INFORMATION
  Report Type: Spontaneous
  Country: BR (occurrence: BR)
  Receive Date: 20240229
  Receipt Date: 20240229
  Transmission Date: 20240410
  Serious: Yes (Other)
  Sender: FDA-Public Use
  Company Number: BR-ELI_LILLY_AND_COMPANY-BR202402012383

PATIENT
  Sex: Male

DRUGS (1)
  1. BASAGLAR [Suspect]
     Active Substance: INSULIN GLARGINE
     Indication: Diabetes mellitus
     Dosage: 30 U, UNKNOWN
     Route: 065
     Dates: start: 2015

REACTIONS (2)
  - Myocardial infarction [Unknown]
  - Venous occlusion [Unknown]

NARRATIVE: CASE EVENT DATE: 20231101
